FAERS Safety Report 12500352 (Version 1)
Quarter: 2016Q2

REPORT INFORMATION
  Report Type: Spontaneous
  Country: US (occurrence: US)
  Receive Date: 20160627
  Receipt Date: 20160627
  Transmission Date: 20160815
  Serious: No
  Sender: FDA-Public Use
  Company Number: US-PFIZER INC-1281096

PATIENT
  Age: 39 Year
  Sex: Female

DRUGS (1)
  1. KETAMINE HCL [Suspect]
     Active Substance: KETAMINE HYDROCHLORIDE
     Indication: COMPLEX REGIONAL PAIN SYNDROME
     Dosage: KETAMINE HCL INJ., USP 10ML MULTI DOSE FLIPTOP VIAL, 50MG/ML, CS/100
     Route: 042

REACTIONS (1)
  - Reaction to preservatives [Unknown]
